FAERS Safety Report 24238903 (Version 3)
Quarter: 2025Q1

REPORT INFORMATION
  Report Type: Spontaneous
  Country: JP (occurrence: JP)
  Receive Date: 20240822
  Receipt Date: 20250116
  Transmission Date: 20250409
  Serious: Yes (Life-Threatening)
  Sender: PFIZER
  Company Number: JP-PFIZER INC-PV202400107935

PATIENT
  Age: 77 Year
  Sex: Female
  Weight: 37.8 kg

DRUGS (15)
  1. ATGAM [Suspect]
     Active Substance: EQUINE THYMOCYTE IMMUNE GLOBULIN
     Indication: Aplastic anaemia
     Dosage: 1720 MG, 1X/DAY
     Route: 042
     Dates: start: 20240701, end: 20240702
  2. ACTEMRA [Suspect]
     Active Substance: TOCILIZUMAB
     Indication: Cytokine release syndrome
     Dosage: 400 MG, 1X/DAY
     Route: 042
     Dates: start: 20240702, end: 20240703
  3. CEFTRIAXONE SODIUM [Concomitant]
     Active Substance: CEFTRIAXONE SODIUM
     Dates: start: 20240626, end: 20240702
  4. ROMIPLOSTIM [Concomitant]
     Active Substance: ROMIPLOSTIM
     Dates: start: 20240702
  5. HYDROCORTISONE SODIUM PHOSPHATE [Concomitant]
     Active Substance: HYDROCORTISONE SODIUM PHOSPHATE
     Dates: start: 20240701, end: 20240702
  6. SOLU-MEDROL [Concomitant]
     Active Substance: METHYLPREDNISOLONE SODIUM SUCCINATE
     Dates: start: 20240703
  7. AMLODIPINE BESYLATE\VALSARTAN [Concomitant]
     Active Substance: AMLODIPINE BESYLATE\VALSARTAN
  8. METFORMIN HYDROCHLORIDE [Concomitant]
     Active Substance: METFORMIN HYDROCHLORIDE
  9. DIPHENHYDRAMINE [Concomitant]
     Active Substance: DIPHENHYDRAMINE
  10. SULFAMETHOXAZOLE\TRIMETHOPRIM [Concomitant]
     Active Substance: SULFAMETHOXAZOLE\TRIMETHOPRIM
  11. VILDAGLIPTIN [Concomitant]
     Active Substance: VILDAGLIPTIN
  12. LANSOPRAZOLE [Concomitant]
     Active Substance: LANSOPRAZOLE
  13. HERBALS [Concomitant]
     Active Substance: HERBALS
  14. MOSAPRIDE [MOSAPRIDE CITRATE] [Concomitant]
  15. ZOVIRAX [Concomitant]
     Active Substance: ACYCLOVIR

REACTIONS (3)
  - Acute respiratory distress syndrome [Recovered/Resolved]
  - Pyrexia [Recovered/Resolved]
  - Blood pressure decreased [Recovered/Resolved]

NARRATIVE: CASE EVENT DATE: 20240701
